FAERS Safety Report 7728765-1 (Version None)
Quarter: 2011Q3

REPORT INFORMATION
  Report Type: 
  Country: None (occurrence: None)
  Receive Date: 20110831
  Receipt Date: 20110831
  Transmission Date: 20111222
  Serious: No
  Sender: FDA-Public Use
  Company Number: None

PATIENT
  Age: 54 Year
  Sex: Female
  Weight: 80.5 kg

DRUGS (1)
  1. INFLIXIMAB [Suspect]
     Dosage: 300 MG IV
     Route: 042
     Dates: start: 20070407, end: 20110720

REACTIONS (4)
  - HEMIPARESIS [None]
  - ASTHENIA [None]
  - DEMYELINATION [None]
  - MUSCULAR WEAKNESS [None]
